FAERS Safety Report 6711215-1 (Version None)
Quarter: 2010Q2

REPORT INFORMATION
  Report Type: 
  Country: None (occurrence: None)
  Receive Date: 20100505
  Receipt Date: 20100426
  Transmission Date: 20101027
  Serious: Yes (Other)
  Sender: FDA-Public Use
  Company Number: BR-ASTRAZENECA-2010SE18777

PATIENT
  Age: 26 Year
  Sex: Male
  Weight: 65 kg

DRUGS (12)
  1. SEROQUEL [Suspect]
     Indication: DEPRESSION
     Dosage: TWICE A DAY
     Route: 048
     Dates: start: 20100312
  2. SEROQUEL [Suspect]
     Indication: DRUG DEPENDENCE
     Dosage: TWICE A DAY
     Route: 048
     Dates: start: 20100312
  3. SEROQUEL [Suspect]
     Dosage: 20 TABLETS
     Route: 048
     Dates: start: 20100409
  4. SEROQUEL [Suspect]
     Dosage: 20 TABLETS
     Route: 048
     Dates: start: 20100409
  5. CLONAZEPAM [Suspect]
     Indication: DEPRESSION
     Route: 048
  6. CLONAZEPAM [Suspect]
     Dosage: 70 TABLETS
     Route: 048
     Dates: start: 20100409, end: 20100409
  7. OMEPRAZOLE [Concomitant]
     Indication: PROPHYLAXIS AGAINST GASTROINTESTINAL ULCER
     Dosage: DAILY
     Route: 048
     Dates: start: 20100301
  8. VENLAFAXINE [Concomitant]
     Dosage: TWICE A DAY
     Route: 048
     Dates: start: 20100301
  9. B COMPLEAX [Concomitant]
     Indication: INCREASED APPETITE
     Dosage: TWICE A DAY
     Route: 048
     Dates: start: 20100301
  10. TIAMINE [Concomitant]
     Indication: INCREASED APPETITE
     Dosage: TWICE A DAY
     Route: 048
     Dates: start: 20100301
  11. PAROXETINE HCL [Concomitant]
     Dosage: TWICE A DAY
     Route: 048
     Dates: start: 20100301
  12. ZOLPIDEM [Concomitant]
     Dosage: DAILY
     Route: 048
     Dates: start: 20100301

REACTIONS (4)
  - DRUG DOSE OMISSION [None]
  - INTENTIONAL DRUG MISUSE [None]
  - RESTLESSNESS [None]
  - SUICIDE ATTEMPT [None]
